FAERS Safety Report 24105137 (Version 1)
Quarter: 2024Q3

REPORT INFORMATION
  Report Type: Spontaneous
  Country: US (occurrence: None)
  Receive Date: 20240717
  Receipt Date: 20240717
  Transmission Date: 20241016
  Serious: Yes (Hospitalization)
  Sender: Public
  Company Number: None

PATIENT
  Sex: Male

DRUGS (2)
  1. WINREVAIR [Suspect]
     Active Substance: SOTATERCEPT-CSRK
     Dosage: INJECT .6ML UNDER THE SKIN FOR 1 DOSE THEN INCREASE TO 1.3ML FOR TARGET DOSE GIVEN EVERY 3 WEEKS.?
     Route: 058
     Dates: start: 202406
  2. TYVASO DPI MAINT KIT PWD [Concomitant]

REACTIONS (3)
  - Dyspnoea [None]
  - Epistaxis [None]
  - Oxygen consumption increased [None]
